FAERS Safety Report 17938243 (Version 3)
Quarter: 2022Q3

REPORT INFORMATION
  Report Type: Spontaneous
  Country: TR (occurrence: TR)
  Receive Date: 20200624
  Receipt Date: 20220713
  Transmission Date: 20221027
  Serious: Yes (Other)
  Sender: FDA-Public Use
  Company Number: TR-GLAXOSMITHKLINE-TR2020TRK108062

PATIENT

DRUGS (1)
  1. VENTOLIN [Suspect]
     Active Substance: ALBUTEROL SULFATE
     Indication: Asthma
     Dosage: UNK
     Dates: start: 201906

REACTIONS (6)
  - Paralysis [Unknown]
  - Sleep disorder [Not Recovered/Not Resolved]
  - Tremor [Not Recovered/Not Resolved]
  - Cough [Not Recovered/Not Resolved]
  - Hypotonia [Not Recovered/Not Resolved]
  - Hypokinesia [Not Recovered/Not Resolved]
